FAERS Safety Report 6383273-8 (Version None)
Quarter: 2009Q3

REPORT INFORMATION
  Report Type: 
  Country: None (occurrence: None)
  Receive Date: 20090929
  Receipt Date: 20090918
  Transmission Date: 20100115
  Serious: Yes (Other)
  Sender: FDA-Public Use
  Company Number: 2009AP003818

PATIENT
  Sex: Female

DRUGS (2)
  1. APO-CARVEDILOL (CARVEDILOL) [Suspect]
     Dosage: PO, TAB; PO
     Route: 048
  2. ATENOLOL [Concomitant]

REACTIONS (1)
  - CEREBROVASCULAR ACCIDENT [None]
